FAERS Safety Report 4634748-0 (Version None)
Quarter: 2005Q2

REPORT INFORMATION
  Report Type: 
  Country: None (occurrence: None)
  Receive Date: 20050412
  Receipt Date: 20050412
  Transmission Date: 20051028
  Serious: Yes (Hospitalization)
  Sender: FDA-Public Use
  Company Number: None

PATIENT
  Age: 84 Year
  Sex: Female
  Weight: 69.4003 kg

DRUGS (5)
  1. VIOXX [Suspect]
     Indication: ARTHRALGIA
     Dosage: 25 MG DAILY ORAL
     Route: 048
  2. VIOXX [Suspect]
     Indication: OSTEOARTHRITIS
     Dosage: 25 MG DAILY ORAL
     Route: 048
  3. PLAVIX [Suspect]
     Indication: CEREBROVASCULAR ACCIDENT PROPHYLAXIS
     Dosage: 75 MG DAILY ORAL
     Route: 048
  4. MAXZIDE [Concomitant]
  5. CALCIUM GLUCONATE [Concomitant]

REACTIONS (1)
  - GASTROINTESTINAL HAEMORRHAGE [None]
